FAERS Safety Report 16351588 (Version 3)
Quarter: 2019Q3

REPORT INFORMATION
  Report Type: Report from Study
  Country: CA (occurrence: CA)
  Receive Date: 20190524
  Receipt Date: 20190730
  Transmission Date: 20191004
  Serious: Yes (Other)
  Sender: FDA-Public Use
  Company Number: CA-ROCHE-1575363

PATIENT
  Age: 68 Year
  Sex: Male
  Weight: 86 kg

DRUGS (25)
  1. SALBUTAMOL [Concomitant]
     Active Substance: ALBUTEROL
     Indication: OFF LABEL USE
  2. PLAQUENIL [Concomitant]
     Active Substance: HYDROXYCHLOROQUINE SULFATE
     Indication: OFF LABEL USE
     Route: 048
  3. CITALOPRAM [Concomitant]
     Active Substance: CITALOPRAM HYDROBROMIDE
     Indication: OFF LABEL USE
  4. METOPROLOL. [Concomitant]
     Active Substance: METOPROLOL
     Indication: OFF LABEL USE
     Route: 065
  5. SIMVASTATIN. [Concomitant]
     Active Substance: SIMVASTATIN
     Indication: OFF LABEL USE
  6. ACTEMRA [Suspect]
     Active Substance: TOCILIZUMAB
     Indication: OFF LABEL USE
     Route: 042
     Dates: start: 20150514
  7. CLOPIDOGREL [Concomitant]
     Active Substance: CLOPIDOGREL BISULFATE
     Indication: OFF LABEL USE
  8. NITROGLYCERIN. [Concomitant]
     Active Substance: NITROGLYCERIN
     Indication: OFF LABEL USE
     Dosage: NOT USED LATELT
     Route: 065
  9. CANDESARTAN. [Concomitant]
     Active Substance: CANDESARTAN
     Indication: OFF LABEL USE
  10. ACTEMRA [Suspect]
     Active Substance: TOCILIZUMAB
     Indication: RHEUMATOID ARTHRITIS
     Route: 042
     Dates: start: 20150409
  11. ACTEMRA [Suspect]
     Active Substance: TOCILIZUMAB
     Dosage: ON HOLD
     Route: 042
     Dates: start: 20160607, end: 20161220
  12. RAMIPRIL. [Concomitant]
     Active Substance: RAMIPRIL
     Indication: OFF LABEL USE
  13. MORPHINE [Concomitant]
     Active Substance: MORPHINE
     Indication: OFF LABEL USE
  14. TOPICORTE [Concomitant]
     Active Substance: DESOXIMETASONE
     Indication: OFF LABEL USE
     Dosage: TOPICAL FOOT CREAM
     Route: 065
  15. CALCIUM CARBONATE. [Concomitant]
     Active Substance: CALCIUM CARBONATE
     Indication: OFF LABEL USE
  16. TYLENOL WITH CODEINE [Concomitant]
     Active Substance: ACETAMINOPHEN\CODEINE PHOSPHATE
     Indication: OFF LABEL USE
     Route: 065
  17. SPIRIVA [Concomitant]
     Active Substance: TIOTROPIUM BROMIDE MONOHYDRATE
     Indication: OFF LABEL USE
  18. ACTEMRA [Suspect]
     Active Substance: TOCILIZUMAB
     Route: 042
     Dates: start: 20170509
  19. DOCUSATE SODIUM. [Concomitant]
     Active Substance: DOCUSATE SODIUM
     Indication: OFF LABEL USE
  20. BETADINE [Concomitant]
     Active Substance: POVIDONE-IODINE
     Indication: OFF LABEL USE
  21. IMURAN [Concomitant]
     Active Substance: AZATHIOPRINE
     Indication: OFF LABEL USE
     Route: 048
  22. ACTEMRA [Suspect]
     Active Substance: TOCILIZUMAB
     Route: 042
     Dates: start: 20170117, end: 20171212
  23. ACTEMRA [Suspect]
     Active Substance: TOCILIZUMAB
     Route: 042
     Dates: start: 20180110
  24. ACETYLSALICYLIC ACID [Concomitant]
     Active Substance: ASPIRIN
     Indication: OFF LABEL USE
     Route: 065
  25. NAPROXEN. [Concomitant]
     Active Substance: NAPROXEN
     Indication: OFF LABEL USE

REACTIONS (27)
  - Alopecia [Unknown]
  - Pain [Recovering/Resolving]
  - Off label use [Unknown]
  - Blood pressure diastolic decreased [Unknown]
  - Skin ulcer [Recovered/Resolved]
  - Rash [Recovering/Resolving]
  - Weight decreased [Unknown]
  - Investigation abnormal [Recovering/Resolving]
  - Musculoskeletal stiffness [Recovering/Resolving]
  - Abdominal pain [Recovering/Resolving]
  - Hypotension [Unknown]
  - Rash pruritic [Unknown]
  - Mouth injury [Recovering/Resolving]
  - Blood pressure systolic increased [Unknown]
  - Oxygen saturation decreased [Unknown]
  - Dyspnoea [Unknown]
  - Acne [Not Recovered/Not Resolved]
  - Intentional product use issue [Unknown]
  - Peripheral swelling [Not Recovered/Not Resolved]
  - Rash [Not Recovered/Not Resolved]
  - Blood pressure systolic abnormal [Unknown]
  - Infusion related reaction [Unknown]
  - Dizziness [Unknown]
  - Hypertension [Unknown]
  - Rhinorrhoea [Recovered/Resolved]
  - Limb injury [Recovered/Resolved]
  - Weight increased [Unknown]

NARRATIVE: CASE EVENT DATE: 201505
